FAERS Safety Report 23872331 (Version 2)
Quarter: 2025Q1

REPORT INFORMATION
  Report Type: Report from Study
  Country: US (occurrence: US)
  Receive Date: 20240520
  Receipt Date: 20250327
  Transmission Date: 20250409
  Serious: Yes (Other)
  Sender: ABBVIE
  Company Number: US-ABBVIE-5762159

PATIENT
  Age: 33 Year
  Sex: Female

DRUGS (4)
  1. RINVOQ [Suspect]
     Active Substance: UPADACITINIB
     Indication: Crohn^s disease
     Route: 048
     Dates: start: 20240206, end: 20240513
  2. RINVOQ [Suspect]
     Active Substance: UPADACITINIB
     Indication: Crohn^s disease
     Route: 048
     Dates: start: 20240603
  3. SLYND [Concomitant]
     Active Substance: DROSPIRENONE
     Indication: Thrombosis
     Dates: start: 202409
  4. ASPIRIN [Concomitant]
     Active Substance: ASPIRIN
     Indication: Thrombosis
     Dates: start: 202409

REACTIONS (5)
  - Ostomy bag placement [Unknown]
  - Stoma prolapse [Unknown]
  - Maternal exposure during pregnancy [Unknown]
  - Fistula [Unknown]
  - Hernia [Unknown]

NARRATIVE: CASE EVENT DATE: 20240101
